FAERS Safety Report 9814983 (Version 1)
Quarter: 2014Q1

REPORT INFORMATION
  Report Type: Report from Study
  Country: US (occurrence: US)
  Receive Date: 20140114
  Receipt Date: 20140114
  Transmission Date: 20141002
  Serious: Yes (Death)
  Sender: FDA-Public Use
  Company Number: US-ROCHE-1332597

PATIENT
  Age: 53 Year
  Sex: Male

DRUGS (13)
  1. AVASTIN [Suspect]
     Indication: COLON CANCER
     Route: 041
     Dates: start: 20120126, end: 20120209
  2. AVASTIN [Suspect]
     Route: 041
     Dates: start: 20120223
  3. DECADRON [Concomitant]
     Route: 041
     Dates: start: 20120126
  4. ZOFRAN [Concomitant]
     Route: 041
     Dates: start: 20120126
  5. OXALIPLATIN [Concomitant]
     Indication: COLON CANCER METASTATIC
     Route: 041
     Dates: start: 20120126
  6. LEUCOVORIN [Concomitant]
     Indication: COLON CANCER METASTATIC
     Route: 041
     Dates: start: 20120126, end: 20120209
  7. LEUCOVORIN [Concomitant]
     Route: 041
     Dates: start: 20120223
  8. 5-FLUOROURACIL [Concomitant]
     Indication: COLON CANCER METASTATIC
     Route: 040
     Dates: start: 20120126, end: 20120209
  9. 5-FLUOROURACIL [Concomitant]
     Route: 040
     Dates: start: 20120223
  10. 5-FLUOROURACIL [Concomitant]
     Dosage: C1
     Route: 041
     Dates: start: 20120126, end: 20120209
  11. 5-FLUOROURACIL [Concomitant]
     Dosage: C1
     Route: 041
     Dates: start: 20120223
  12. NORMAL SALINE [Concomitant]
  13. HEPARIN [Concomitant]

REACTIONS (5)
  - Death [Fatal]
  - Constipation [Unknown]
  - Pain [Unknown]
  - Fatigue [Unknown]
  - Diarrhoea [Unknown]
